FAERS Safety Report 9220405 (Version 1)
Quarter: 2013Q2

REPORT INFORMATION
  Report Type: Spontaneous
  Country: PL (occurrence: PL)
  Receive Date: 20130409
  Receipt Date: 20130409
  Transmission Date: 20140414
  Serious: Yes (Other)
  Sender: FDA-Public Use
  Company Number: PHHY2013PL007832

PATIENT
  Age: 35 Year
  Sex: Female

DRUGS (3)
  1. PARACETAMOL [Suspect]
     Indication: NASOPHARYNGITIS
  2. IMATINIB [Suspect]
     Indication: CHRONIC MYELOID LEUKAEMIA
     Dosage: 400 MG, DAILY
     Dates: start: 200505
  3. IMATINIB [Suspect]
     Dosage: UNK

REACTIONS (9)
  - Hepatotoxicity [Unknown]
  - Transaminases increased [Unknown]
  - Jaundice [Unknown]
  - Blood bilirubin increased [Unknown]
  - Leukocytosis [Unknown]
  - Drug intolerance [Unknown]
  - Splenomegaly [Unknown]
  - Anaemia [Unknown]
  - No therapeutic response [Unknown]
